FAERS Safety Report 4901120-5 (Version None)
Quarter: 2006Q1

REPORT INFORMATION
  Report Type: 
  Country: None (occurrence: None)
  Receive Date: 20060203
  Receipt Date: 20050209
  Transmission Date: 20060701
  Serious: Yes (Other)
  Sender: FDA-Public Use
  Company Number: IE-NOVOPROD-242202

PATIENT
  Sex: Male
  Weight: 133 kg

DRUGS (2)
  1. MIXTARD 30 NOVOLET [Suspect]
     Indication: DIABETES MELLITUS INSULIN-DEPENDENT
     Dates: start: 20050110
  2. MIXTARD 30 NOVOLET [Suspect]

REACTIONS (1)
  - MEDICAL DEVICE COMPLICATION [None]
